FAERS Safety Report 9408034 (Version 1)
Quarter: 2013Q3

REPORT INFORMATION
  Report Type: Spontaneous
  Country: US (occurrence: US)
  Receive Date: 20130718
  Receipt Date: 20130718
  Transmission Date: 20140515
  Serious: Yes (Other)
  Sender: FDA-Public Use
  Company Number: US-SHIRE-ALL1-2013-04726

PATIENT
  Age: 42 Year
  Sex: Male
  Weight: 90.7 kg

DRUGS (3)
  1. MAS (MIXED AMPHETAMINE SALTS) [Suspect]
     Indication: ATTENTION DEFICIT/HYPERACTIVITY DISORDER
     Dosage: 30 MG (THREE 10 MG CAPSULES IN THE AM, THREE 10 MG CAPSULES IN THE PM), 2X/DAY:BID
     Route: 048
     Dates: start: 2008
  2. MAS (MIXED AMPHETAMINE SALTS) [Suspect]
     Dosage: 10 MG, 1X/DAY:QD
     Route: 048
  3. MAS (MIXED AMPHETAMINE SALTS) [Suspect]
     Dosage: UNK, UNKNOWN
     Route: 048

REACTIONS (6)
  - Suicidal ideation [Recovered/Resolved]
  - Fatigue [Recovered/Resolved]
  - Mood altered [Recovered/Resolved]
  - Drug dose omission [Recovered/Resolved]
  - Prescribed overdose [Recovered/Resolved]
  - Drug prescribing error [Recovered/Resolved]
